FAERS Safety Report 4784824-7 (Version None)
Quarter: 2005Q3

REPORT INFORMATION
  Report Type: 
  Country: None (occurrence: None)
  Receive Date: 20050928
  Receipt Date: 20050912
  Transmission Date: 20060218
  Serious: Yes (Hospitalization)
  Sender: FDA-Public Use
  Company Number: US_0504115748

PATIENT
  Age: 33 Year
  Sex: Female
  Weight: 103 kg

DRUGS (3)
  1. ZYPREXA [Suspect]
     Indication: BIPOLAR DISORDER
     Dosage: 5 MG
     Dates: start: 19991101
  2. SPIRONOLACTONE [Concomitant]
  3. RISPERDAL [Concomitant]

REACTIONS (3)
  - DIABETES MELLITUS [None]
  - HYPOGLYCAEMIA [None]
  - SINUS TACHYCARDIA [None]
